FAERS Safety Report 7719288-4 (Version None)
Quarter: 2011Q3

REPORT INFORMATION
  Report Type: 
  Country: None (occurrence: None)
  Receive Date: 20110830
  Receipt Date: 20110822
  Transmission Date: 20111222
  Serious: Yes (Other)
  Sender: FDA-Public Use
  Company Number: US-JNJFOC-20110810488

PATIENT
  Age: 13 Year
  Sex: Female

DRUGS (2)
  1. REMICADE [Suspect]
     Indication: CROHN'S DISEASE
     Route: 042
     Dates: start: 20110818
  2. REMICADE [Suspect]
     Dosage: 2ND INDUCTION
     Route: 042
     Dates: start: 20110804

REACTIONS (4)
  - TYPE IV HYPERSENSITIVITY REACTION [None]
  - ARTHRALGIA [None]
  - PYREXIA [None]
  - CHEST PAIN [None]
